FAERS Safety Report 15089395 (Version 1)
Quarter: 2018Q2

REPORT INFORMATION
  Report Type: Spontaneous
  Country: BE (occurrence: BE)
  Receive Date: 20180629
  Receipt Date: 20180629
  Transmission Date: 20180711
  Serious: Yes (Other)
  Sender: FDA-Public Use
  Company Number: BE-PFIZER INC-2018258443

PATIENT
  Age: 63 Year
  Sex: Female

DRUGS (3)
  1. DICLOFENAC [Concomitant]
     Active Substance: DICLOFENAC
     Indication: ARTHRALGIA
     Dosage: UNK (DURING 4 TO 5 DAYS BEFORE THE ONSET OF VISUAL COMPLAINTS AT A MAXIMUM DAILY DOSE OF 200 OR 250)
  2. CALCIUM [Concomitant]
     Active Substance: CALCIUM
     Indication: SUPPLEMENTATION THERAPY
     Dosage: UNK
  3. PAMIDRONATE DISODIUM. [Suspect]
     Active Substance: PAMIDRONATE DISODIUM
     Indication: OSTEOPOROSIS
     Dosage: 60 MG, UNK (2-HR INFUSION)
     Route: 042

REACTIONS (4)
  - Porphyria [Recovering/Resolving]
  - Uveitis [Recovered/Resolved]
  - Optic neuritis [Recovered/Resolved]
  - Disease recurrence [Recovering/Resolving]
